FAERS Safety Report 9115368 (Version 1)
Quarter: 2013Q1

REPORT INFORMATION
  Report Type: Spontaneous
  Country: US (occurrence: None)
  Receive Date: 20130129
  Receipt Date: 20130129
  Transmission Date: 20140127
  Serious: Yes (Death, Life-Threatening)
  Sender: FDA-Public Use
  Company Number: 144436

PATIENT
  Age: 70 Year
  Sex: Female

DRUGS (1)
  1. ETOPOSIDE [Suspect]
     Indication: BONE MARROW CONDITIONING REGIMEN
     Dosage: 200MG/M2 EVERY 12 HOURS FOR 4 DAY

REACTIONS (2)
  - Pneumonitis [None]
  - Respiratory failure [None]
